FAERS Safety Report 16631908 (Version 1)
Quarter: 2019Q3

REPORT INFORMATION
  Report Type: Spontaneous
  Country: US (occurrence: US)
  Receive Date: 20190725
  Receipt Date: 20190725
  Transmission Date: 20191004
  Serious: No
  Sender: FDA-Public Use
  Company Number: US-ABBVIE-19S-163-2680616-00

PATIENT
  Sex: Female
  Weight: 58.97 kg

DRUGS (3)
  1. SYNTHROID [Suspect]
     Active Substance: LEVOTHYROXINE SODIUM
     Indication: THYROID DISORDER
     Dosage: PATIENT TOOK ONE AND A HALF TABLET EVERY DAY
     Route: 048
  2. DIPHENOXYLATE/ATROPINE [Suspect]
     Active Substance: ATROPINE\DIPHENOXYLATE
     Indication: CLOSTRIDIUM DIFFICILE COLITIS
     Route: 065
     Dates: start: 2016
  3. METOPROLOL. [Suspect]
     Active Substance: METOPROLOL
     Indication: PRODUCT USED FOR UNKNOWN INDICATION
     Route: 065

REACTIONS (6)
  - Wrong technique in product usage process [Unknown]
  - Thyroid function test abnormal [Unknown]
  - Cardiac disorder [Unknown]
  - Gastrointestinal disorder [Not Recovered/Not Resolved]
  - Heart rate decreased [Unknown]
  - Allergic reaction to excipient [Unknown]
